FAERS Safety Report 13550662 (Version 1)
Quarter: 2017Q2

REPORT INFORMATION
  Report Type: Spontaneous
  Country: US (occurrence: US)
  Receive Date: 20170516
  Receipt Date: 20170516
  Transmission Date: 20170830
  Serious: Yes (Hospitalization, Other)
  Sender: FDA-Public Use
  Company Number: US-009507513-1705USA006220

PATIENT
  Age: 32 Year
  Sex: Female

DRUGS (5)
  1. LEUPROLIDE [Suspect]
     Active Substance: LEUPROLIDE
     Dosage: 2 MG, UNK; 1500 IU
  2. GANIRELIX ACETATE INJECTION [Suspect]
     Active Substance: GANIRELIX ACETATE
     Dosage: 0.25 MG, UNK; CD 5
  3. PREGNYL [Suspect]
     Active Substance: CHORIOGONADOTROPIN ALFA
     Dosage: 1275IU
  4. FOLLISTIM [Suspect]
     Active Substance: FOLLITROPIN
     Dosage: 150 IU, UNK
  5. MENOPUR [Suspect]
     Active Substance: FOLLITROPIN\LUTEINIZING HORMONE

REACTIONS (1)
  - Ovarian hyperstimulation syndrome [Unknown]
